FAERS Safety Report 14601219 (Version 1)
Quarter: 2018Q1

REPORT INFORMATION
  Report Type: Spontaneous
  Country: FR (occurrence: FR)
  Receive Date: 20180305
  Receipt Date: 20180305
  Transmission Date: 20180509
  Serious: Yes (Life-Threatening, Hospitalization, Other)
  Sender: FDA-Public Use
  Company Number: FR-GILEAD-2018-0323768

PATIENT
  Age: 39 Year
  Sex: Male
  Weight: 57 kg

DRUGS (3)
  1. EMTRIVA [Suspect]
     Active Substance: EMTRICITABINE
     Indication: HIV INFECTION
     Dosage: UNK
     Route: 048
  2. FUZEON [Suspect]
     Active Substance: ENFUVIRTIDE
     Indication: HIV INFECTION
     Route: 058
  3. DOLUTEGRAVIR [Suspect]
     Active Substance: DOLUTEGRAVIR
     Indication: HIV INFECTION
     Route: 048
     Dates: start: 20171129, end: 20171221

REACTIONS (8)
  - Pneumoperitoneum [Recovering/Resolving]
  - Bone marrow failure [Recovered/Resolved]
  - Liver abscess [Unknown]
  - Pyrexia [Unknown]
  - Septic shock [Recovering/Resolving]
  - Pleural effusion [Unknown]
  - Eosinophilia [Unknown]
  - Immune reconstitution inflammatory syndrome [Recovering/Resolving]

NARRATIVE: CASE EVENT DATE: 201712
